FAERS Safety Report 18400684 (Version 1)
Quarter: 2020Q4

REPORT INFORMATION
  Report Type: Spontaneous
  Country: CN (occurrence: CN)
  Receive Date: 20201019
  Receipt Date: 20201019
  Transmission Date: 20210114
  Serious: Yes (Hospitalization, Other)
  Sender: FDA-Public Use
  Company Number: CN-JNJFOC-20201026578

PATIENT
  Age: 48 Year
  Sex: Female
  Weight: 35 kg

DRUGS (2)
  1. MORPHINE SULFATE. [Suspect]
     Active Substance: MORPHINE SULFATE
     Indication: PAIN
     Dosage: 30 MILLIGRAM, 2/DAY
     Route: 048
  2. TRAMADOL HYDROCHLORIDE. [Suspect]
     Active Substance: TRAMADOL HYDROCHLORIDE
     Indication: PAIN
     Dosage: UNK
     Route: 048

REACTIONS (9)
  - Decreased appetite [Unknown]
  - Pollakiuria [Unknown]
  - Micturition urgency [Unknown]
  - Constipation [Unknown]
  - Induration [Unknown]
  - Poor quality sleep [Unknown]
  - Urethral pain [Unknown]
  - Drug ineffective [Unknown]
  - Malignant neoplasm progression [Unknown]
